FAERS Safety Report 16166223 (Version 2)
Quarter: 2019Q3

REPORT INFORMATION
  Report Type: Report from Study
  Country: US (occurrence: US)
  Receive Date: 20190406
  Receipt Date: 20190710
  Transmission Date: 20191004
  Serious: Yes (Hospitalization)
  Sender: FDA-Public Use
  Company Number: US-TAKEDA-2018TUS006876

PATIENT
  Age: 68 Year
  Sex: Male

DRUGS (2)
  1. PONATINIB [Suspect]
     Active Substance: PONATINIB
     Indication: CHRONIC MYELOID LEUKAEMIA
     Dosage: 15 MILLIGRAM, BID
     Route: 048
     Dates: start: 20140814
  2. PONATINIB [Suspect]
     Active Substance: PONATINIB
     Dosage: 15 MILLIGRAM, QD
     Route: 048

REACTIONS (17)
  - Liver disorder [Unknown]
  - Weight decreased [Unknown]
  - Pain in extremity [Unknown]
  - Ear disorder [Unknown]
  - Fall [Unknown]
  - Dehydration [Unknown]
  - Cholecystectomy [Unknown]
  - Dizziness [Unknown]
  - Clostridium difficile infection [Unknown]
  - Malaise [Unknown]
  - Diarrhoea [Unknown]
  - Blood pressure increased [Unknown]
  - Gastrooesophageal reflux disease [Unknown]
  - Joint injury [Unknown]
  - Dysphemia [Unknown]
  - Peripheral swelling [Unknown]
  - Rash [Recovered/Resolved]

NARRATIVE: CASE EVENT DATE: 20190308
